FAERS Safety Report 25598299 (Version 1)
Quarter: 2025Q3

REPORT INFORMATION
  Report Type: Spontaneous
  Country: US (occurrence: US)
  Receive Date: 20250723
  Receipt Date: 20250723
  Transmission Date: 20251021
  Serious: No
  Sender: PRASCO
  Company Number: US-Prasco Laboratories-PRAS20250294

PATIENT
  Sex: Male

DRUGS (2)
  1. ESTRADIOL [Suspect]
     Active Substance: ESTRADIOL
     Indication: Exposure via partner
     Route: 061
  2. DEVICE [Suspect]
     Active Substance: DEVICE
     Indication: Sexually active
     Route: 065

REACTIONS (6)
  - Penile erythema [Recovered/Resolved]
  - Pruritus genital [Recovered/Resolved]
  - Genital erythema [Recovered/Resolved]
  - Pruritus genital [Recovered/Resolved]
  - Exposure via partner [Unknown]
  - Exposure via skin contact [Recovered/Resolved]
